FAERS Safety Report 7516667-5 (Version None)
Quarter: 2011Q2

REPORT INFORMATION
  Report Type: 
  Country: None (occurrence: None)
  Receive Date: 20110601
  Receipt Date: 20110526
  Transmission Date: 20111010
  Serious: Yes (Hospitalization)
  Sender: FDA-Public Use
  Company Number: JP-AMGEN-JPNCT2011027718

PATIENT
  Age: 76 Year
  Sex: Female

DRUGS (12)
  1. LANSOPRAZOLE [Concomitant]
     Dosage: 15 MG, UNK
     Route: 048
     Dates: start: 20110210
  2. ROBAXIN [Concomitant]
     Dosage: 0.25 G, UNK
     Route: 048
     Dates: start: 20090514
  3. CELECOXIB [Concomitant]
     Dosage: 100 MG, PRN
     Route: 048
     Dates: start: 20101104
  4. CAFFEINE [Concomitant]
     Dosage: 0.03 G, UNK
     Route: 048
     Dates: start: 20090514
  5. DENOSUMAB [Suspect]
     Indication: OSTEOPOROSIS
     Dosage: 60 MG, Q6MO
     Route: 058
     Dates: start: 20110210
  6. METHYCOOL [Concomitant]
     Dosage: 500 A?G, UNK
     Route: 048
     Dates: start: 20100521
  7. HIRUDOID [Concomitant]
     Dosage: AS NEEDED, OPTIMUM DOSE
     Route: 062
     Dates: start: 20100709
  8. SELBEX [Concomitant]
     Dosage: 0.5 G, UNK
     Route: 048
     Dates: start: 20090514
  9. NEUROTROPIN [Concomitant]
     Dosage: 12 IU, UNK
     Route: 048
     Dates: start: 20090116
  10. LOXONIN [Concomitant]
     Dosage: 0.6 G, PRN
     Route: 048
     Dates: start: 20090514
  11. CALCICHEW D3 [Concomitant]
     Dosage: UNK
     Route: 048
     Dates: start: 20090123
  12. BALANCE [Concomitant]
     Dosage: 0.05 G, UNK
     Route: 048
     Dates: start: 20090514

REACTIONS (1)
  - INTRACRANIAL ANEURYSM [None]
